FAERS Safety Report 5127586-6 (Version None)
Quarter: 2006Q4

REPORT INFORMATION
  Report Type: 
  Country: None (occurrence: None)
  Receive Date: 20061016
  Receipt Date: 20061005
  Transmission Date: 20070319
  Serious: Yes (Life-Threatening, Hospitalization, Other)
  Sender: FDA-Public Use
  Company Number: JP-JNJFOC-20060804985

PATIENT
  Sex: Female
  Weight: 52 kg

DRUGS (22)
  1. REMICADE [Suspect]
     Route: 042
  2. REMICADE [Suspect]
     Dosage: 8 INFUSIONS ON UNSPECIFIED DATES
     Route: 042
  3. REMICADE [Suspect]
     Dosage: 8 INFUSIONS ON UNSPECIFIED DATES
     Route: 042
  4. REMICADE [Suspect]
     Dosage: 8 INFUSIONS ON UNSPECIFIED DATES
     Route: 042
  5. REMICADE [Suspect]
     Dosage: 8 INFUSIONS ON UNSPECIFIED DATES
     Route: 042
  6. REMICADE [Suspect]
     Dosage: 8 INFUSIONS ON UNSPECIFIED DATES
     Route: 042
  7. REMICADE [Suspect]
     Dosage: 8 INFUSIONS ON UNSPECIFIED DATES
     Route: 042
  8. REMICADE [Suspect]
     Dosage: 8 INFUSIONS ON UNSPECIFIED DATES
     Route: 042
  9. REMICADE [Suspect]
     Dosage: 8 INFUSIONS ON UNSPECIFIED DATES
     Route: 042
  10. REMICADE [Suspect]
     Route: 042
  11. REMICADE [Suspect]
     Route: 042
  12. REMICADE [Suspect]
     Route: 042
  13. REMICADE [Suspect]
     Route: 042
  14. REMICADE [Suspect]
     Indication: RHEUMATOID ARTHRITIS
     Route: 042
  15. RHEUMATREX [Suspect]
     Indication: RHEUMATOID ARTHRITIS
     Route: 048
  16. ADRENAL HORMONE PREPARATIONS [Concomitant]
     Indication: RHEUMATOID ARTHRITIS
  17. PREDONINE [Concomitant]
     Indication: RHEUMATOID ARTHRITIS
     Route: 048
  18. FOLAMIN [Concomitant]
     Route: 048
  19. CALCIUM LACTATE [Concomitant]
     Route: 048
  20. EPL [Concomitant]
     Route: 048
  21. RUEFRIEN [Concomitant]
     Route: 048
  22. PENFILL [Concomitant]
     Dosage: 300 UT DAILY
     Route: 058

REACTIONS (1)
  - CENTRAL NERVOUS SYSTEM LYMPHOMA [None]
